FAERS Safety Report 8271126-X (Version None)
Quarter: 2012Q2

REPORT INFORMATION
  Report Type: 
  Country: None (occurrence: None)
  Receive Date: 20120410
  Receipt Date: 20120405
  Transmission Date: 20120825
  Serious: Yes (Hospitalization, Disabling, Other)
  Sender: FDA-Public Use
  Company Number: FR-PFIZER INC-2009311431

PATIENT
  Age: 50 Year
  Sex: Female

DRUGS (17)
  1. NAPHAZOLINE HCL [Interacting]
     Indication: INFLUENZA LIKE ILLNESS
  2. OXAZEPAM [Concomitant]
     Dosage: 50 MG, 1/2 TABLET IN THE EVENING
     Dates: start: 20081211
  3. FLURBIPROFEN [Concomitant]
     Indication: PAIN
     Dosage: 100 MG 2X/DAY, 5 DAYS PER MONTH
     Route: 048
     Dates: start: 20081211, end: 20090124
  4. ESCITALOPRAM [Concomitant]
     Indication: DEPRESSION
     Dosage: 20 MG, 1X/DAY
     Route: 048
     Dates: start: 20090119, end: 20090124
  5. ESCITALOPRAM [Concomitant]
     Indication: INFLUENZA LIKE ILLNESS
  6. CITALOPRAM HYDROBROMIDE [Concomitant]
     Dosage: 20 MG, 2X/DAY
     Dates: start: 20081211, end: 20090119
  7. CEFUROXIME [Concomitant]
     Indication: BACTERIAL INFECTION
     Dosage: 250 MG, 2X/DAY
     Route: 048
     Dates: start: 20090119, end: 20090124
  8. EUPHON [Concomitant]
     Indication: COUGH
     Dosage: 15 ML, 3X/DAY
     Route: 048
     Dates: start: 20090119, end: 20090124
  9. TRAMADOL HCL [Concomitant]
     Dosage: 150 MG, 2X/DAY
     Dates: start: 20081211
  10. HAVLANE [Concomitant]
     Dosage: 1 MG, 1 TABLET AT BED TIME
     Dates: start: 20081211
  11. DEPAKOTE [Concomitant]
     Dosage: 250 MG, 3X/DAY
  12. RELPAX [Suspect]
     Indication: MIGRAINE
     Dosage: 40 MG, AS NEEDED
     Route: 048
     Dates: start: 20081211, end: 20090124
  13. RELPAX [Interacting]
     Indication: INFLUENZA LIKE ILLNESS
  14. PARACETAMOL [Concomitant]
     Dosage: 1000 MG, 3X/DAY
     Dates: start: 20081211
  15. NAPHAZOLINE HCL [Interacting]
     Indication: NASAL CONGESTION
     Dosage: 1 DF, 3X/DAY
     Route: 045
     Dates: start: 20090119, end: 20090124
  16. FLURBIPROFEN [Concomitant]
     Indication: INFLUENZA LIKE ILLNESS
  17. PROPRANOLOL [Concomitant]
     Indication: MIGRAINE
     Dosage: 160 MG, 1 CAPSULE IN THE MORNING
     Dates: start: 20081211

REACTIONS (15)
  - MONOPARESIS [None]
  - FALL [None]
  - GAIT DISTURBANCE [None]
  - FACIAL PARESIS [None]
  - ACTIVITIES OF DAILY LIVING IMPAIRED [None]
  - ANGIOGRAM CEREBRAL ABNORMAL [None]
  - ANGIOPATHY [None]
  - MONOPLEGIA [None]
  - SPEECH DISORDER [None]
  - HEADACHE [None]
  - DEPRESSION [None]
  - MALAISE [None]
  - DIZZINESS [None]
  - CEREBROVASCULAR ACCIDENT [None]
  - DRUG INTERACTION [None]
